FAERS Safety Report 15269031 (Version 1)
Quarter: 2018Q3

REPORT INFORMATION
  Report Type: Spontaneous
  Country: US (occurrence: US)
  Receive Date: 20180813
  Receipt Date: 20180813
  Transmission Date: 20181010
  Serious: Yes (Other)
  Sender: FDA-Public Use
  Company Number: US-ACCORD-070714

PATIENT
  Age: 49 Year
  Sex: Female
  Weight: 146.06 kg

DRUGS (1)
  1. ESCITALOPRAM ACCORD [Suspect]
     Active Substance: ESCITALOPRAM OXALATE
     Indication: DEPRESSION
     Dosage: STRENGTH: 20 MG?TOOK 1/2 TABLET
     Route: 048
     Dates: start: 200702, end: 201806

REACTIONS (1)
  - Irritable bowel syndrome [Unknown]

NARRATIVE: CASE EVENT DATE: 201806
